FAERS Safety Report 9405983 (Version 3)
Quarter: 2013Q3

REPORT INFORMATION
  Report Type: Spontaneous
  Country: FR (occurrence: FR)
  Receive Date: 20130717
  Receipt Date: 20130816
  Transmission Date: 20140515
  Serious: Yes (Other)
  Sender: FDA-Public Use
  Company Number: FR-B.I. PHARMACEUTICALS,INC./RIDGEFIELD-2013-FF-01856FF

PATIENT
  Age: 77 Year
  Sex: Female

DRUGS (5)
  1. PRADAXA [Suspect]
     Indication: ATRIAL FIBRILLATION
     Dosage: 300 MG
     Route: 048
     Dates: start: 20121015, end: 20121106
  2. SOTALEX [Concomitant]
     Dates: start: 20121015
  3. HEMIGOXINE [Concomitant]
     Dates: start: 20121015
  4. PRAVASTATINE [Concomitant]
     Dates: start: 20121015
  5. COAPROVEL [Concomitant]
     Dates: start: 20121015

REACTIONS (6)
  - Skin toxicity [Not Recovered/Not Resolved]
  - Depression [Recovered/Resolved]
  - Ecchymosis [Not Recovered/Not Resolved]
  - Fatigue [Recovered/Resolved]
  - Balance disorder [Recovered/Resolved]
  - Tachycardia [Unknown]
